FAERS Safety Report 11392734 (Version 1)
Quarter: 2015Q3

REPORT INFORMATION
  Report Type: Report from Study
  Country: CA (occurrence: CA)
  Receive Date: 20150818
  Receipt Date: 20150818
  Transmission Date: 20151125
  Serious: Yes (Other)
  Sender: FDA-Public Use
  Company Number: CA-AMGEN-CANSL2015071655

PATIENT
  Age: 32 Year
  Sex: Female
  Weight: 56.69 kg

DRUGS (5)
  1. ENBREL [Suspect]
     Active Substance: ETANERCEPT
     Indication: PSORIATIC ARTHROPATHY
     Dosage: 50 MG, 2 TIMES/WK
     Route: 030
     Dates: start: 2011, end: 2015
  2. PLAQUENIL [Concomitant]
     Active Substance: HYDROXYCHLOROQUINE SULFATE
     Indication: PSORIATIC ARTHROPATHY
     Dosage: 20 MG, QD
     Route: 048
     Dates: start: 2005
  3. IMURAN [Concomitant]
     Active Substance: AZATHIOPRINE
     Dosage: 50 MG, QD
     Route: 048
     Dates: start: 2005
  4. FOLATE [Concomitant]
     Active Substance: FOLATE SODIUM
     Indication: PSORIATIC ARTHROPATHY
     Dosage: 5 MG, QD
     Route: 048
     Dates: start: 2005
  5. CYCLOSPORIN [Concomitant]
     Active Substance: CYCLOSPORINE
     Indication: PSORIATIC ARTHROPATHY
     Dosage: UNK
     Dates: end: 2014

REACTIONS (5)
  - Kidney infection [Unknown]
  - Incorrect route of drug administration [Unknown]
  - Premature delivery [Recovered/Resolved]
  - Pregnancy [Recovered/Resolved]
  - Oligohydramnios [Unknown]

NARRATIVE: CASE EVENT DATE: 2011
